FAERS Safety Report 13414300 (Version 1)
Quarter: 2017Q2

REPORT INFORMATION
  Report Type: Report from Study
  Country: US (occurrence: US)
  Receive Date: 20170406
  Receipt Date: 20170406
  Transmission Date: 20170830
  Serious: Yes (Hospitalization, Other)
  Sender: FDA-Public Use
  Company Number: US-EMD SERONO-7023973

PATIENT
  Age: 40 Year
  Sex: Female
  Weight: 69 kg

DRUGS (7)
  1. REBIF [Suspect]
     Active Substance: INTERFERON BETA-1A
     Indication: MULTIPLE SCLEROSIS
     Route: 058
     Dates: start: 20020220, end: 200505
  2. ZOLOFT [Concomitant]
     Active Substance: SERTRALINE HYDROCHLORIDE
     Indication: DEPRESSION
  3. CYMBALTA [Concomitant]
     Active Substance: DULOXETINE HYDROCHLORIDE
     Indication: FIBROMYALGIA
     Dates: end: 2004
  4. CYMBALTA [Concomitant]
     Active Substance: DULOXETINE HYDROCHLORIDE
     Indication: DEPRESSION
     Dates: start: 2010
  5. REBIF [Suspect]
     Active Substance: INTERFERON BETA-1A
     Route: 058
     Dates: start: 20080317
  6. ADDERALL [Concomitant]
     Active Substance: AMPHETAMINE ASPARTATE\AMPHETAMINE SULFATE\DEXTROAMPHETAMINE SACCHARATE\DEXTROAMPHETAMINE SULFATE
     Indication: DEPRESSION
  7. REBIF [Suspect]
     Active Substance: INTERFERON BETA-1A
     Route: 058
     Dates: start: 2006, end: 20080101

REACTIONS (21)
  - Injection site ulcer [Unknown]
  - Injection site pain [Recovering/Resolving]
  - Eating disorder [Unknown]
  - Feeling abnormal [Unknown]
  - Uterine polyp [Unknown]
  - Localised infection [Recovering/Resolving]
  - Injection site cyst [Recovering/Resolving]
  - Limb mass [Unknown]
  - Rheumatoid arthritis [Recovered/Resolved with Sequelae]
  - Fibromyalgia [Unknown]
  - Influenza like illness [Recovering/Resolving]
  - Sleep disorder [Unknown]
  - Breast cancer female [Recovering/Resolving]
  - Intervertebral disc degeneration [Unknown]
  - Injection site discharge [Recovering/Resolving]
  - Injection site discolouration [Unknown]
  - Multiple sclerosis relapse [Unknown]
  - Injection site scab [Unknown]
  - Scar [Unknown]
  - Back pain [Unknown]
  - Injection site mass [Unknown]

NARRATIVE: CASE EVENT DATE: 200504
